FAERS Safety Report 23634662 (Version 1)
Quarter: 2024Q1

REPORT INFORMATION
  Report Type: Spontaneous
  Country: FR (occurrence: None)
  Receive Date: 20240315
  Receipt Date: 20240315
  Transmission Date: 20240410
  Serious: Yes (Hospitalization, Disabling)
  Sender: FDA-Public Use
  Company Number: 2024A057857

PATIENT
  Age: 35 Year
  Sex: Male
  Weight: 103 kg

DRUGS (1)
  1. QUETIAPINE FUMARATE [Suspect]
     Active Substance: QUETIAPINE FUMARATE
     Indication: Bipolar I disorder
     Dosage: 1 CP PER DAY
     Route: 048
     Dates: start: 20160715, end: 20161201

REACTIONS (2)
  - Metabolic surgery [Recovered/Resolved with Sequelae]
  - Abnormal weight gain [Recovering/Resolving]

NARRATIVE: CASE EVENT DATE: 20160901
